FAERS Safety Report 4413998-2 (Version None)
Quarter: 2004Q3

REPORT INFORMATION
  Report Type: 
  Country: None (occurrence: None)
  Receive Date: 20040728
  Receipt Date: 20040721
  Transmission Date: 20050211
  Serious: Yes (Death)
  Sender: FDA-Public Use
  Company Number: JP-JNJFOC-20040702648

PATIENT
  Age: 39 Year
  Sex: Female

DRUGS (5)
  1. LEVOFLOXACIN [Suspect]
     Indication: PNEUMONIA
     Dosage: ORAL
     Route: 048
     Dates: start: 20040601, end: 20040601
  2. AUGMENTIN '125' [Concomitant]
  3. PEGASYA (PEGINTERFERON ALFA-2B) [Concomitant]
  4. SUBUTEX [Concomitant]
  5. RIBAVIRIN [Concomitant]

REACTIONS (23)
  - ASTHENIA [None]
  - BONE MARROW DEPRESSION [None]
  - CARDIAC ARREST [None]
  - CHEST PAIN [None]
  - CONDITION AGGRAVATED [None]
  - DIALYSIS [None]
  - DISTURBANCE IN ATTENTION [None]
  - DYSPNOEA [None]
  - EJECTION FRACTION DECREASED [None]
  - ELECTROMECHANICAL DISSOCIATION [None]
  - GINGIVAL DISCOLOURATION [None]
  - HAEMATOMA [None]
  - HAEMODYNAMIC INSTABILITY [None]
  - HEART RATE INCREASED [None]
  - HYPERTHERMIA [None]
  - HYPOXIA [None]
  - LACTIC ACIDOSIS [None]
  - LYMPHADENOPATHY [None]
  - MULTI-ORGAN FAILURE [None]
  - PARALYSIS [None]
  - PHARYNGOLARYNGEAL PAIN [None]
  - RESPIRATORY DISORDER [None]
  - SEPTIC SHOCK [None]
